FAERS Safety Report 17876476 (Version 2)
Quarter: 2020Q2

REPORT INFORMATION
  Report Type: Spontaneous
  Country: AR (occurrence: AR)
  Receive Date: 20200609
  Receipt Date: 20200619
  Transmission Date: 20200714
  Serious: Yes (Hospitalization, Other)
  Sender: FDA-Public Use
  Company Number: AR-PFIZER INC-2020223185

PATIENT
  Age: 43 Year
  Sex: Female

DRUGS (1)
  1. SUTENT [Suspect]
     Active Substance: SUNITINIB MALATE
     Indication: GASTROINTESTINAL STROMAL TUMOUR
     Dosage: 50 MG, CYCLIC, (SCHEME 4X2)
     Dates: start: 20140827

REACTIONS (5)
  - Hair colour changes [Not Recovered/Not Resolved]
  - Second primary malignancy [Not Recovered/Not Resolved]
  - Chronic leukaemia [Not Recovered/Not Resolved]
  - Limb injury [Not Recovered/Not Resolved]
  - Sensitive skin [Not Recovered/Not Resolved]
